FAERS Safety Report 6779265-7 (Version None)
Quarter: 2010Q2

REPORT INFORMATION
  Report Type: 
  Country: None (occurrence: None)
  Receive Date: 20100618
  Receipt Date: 20100608
  Transmission Date: 20101027
  Serious: Yes (Other)
  Sender: FDA-Public Use
  Company Number: US-ABBOTT-10P-163-0650311-00

PATIENT
  Sex: Female

DRUGS (2)
  1. HUMIRA [Suspect]
     Indication: PSORIASIS
     Dates: start: 20100402, end: 20100402
  2. HUMIRA [Suspect]
     Dates: start: 20100409, end: 20100604

REACTIONS (2)
  - PRURITUS GENERALISED [None]
  - PUSTULAR PSORIASIS [None]
